FAERS Safety Report 5315210-9 (Version None)
Quarter: 2007Q2

REPORT INFORMATION
  Report Type: 
  Country: None (occurrence: None)
  Receive Date: 20070502
  Receipt Date: 20070424
  Transmission Date: 20071010
  Serious: Yes (Hospitalization)
  Sender: FDA-Public Use
  Company Number: JP-MERCK-0702USA00754

PATIENT
  Age: 14 Year
  Sex: Male

DRUGS (1)
  1. MAXALT [Suspect]
     Indication: MIGRAINE
     Route: 048
     Dates: start: 20070130, end: 20070130

REACTIONS (2)
  - ANAPHYLACTIC REACTION [None]
  - PRESCRIBED OVERDOSE [None]
